FAERS Safety Report 11273776 (Version 1)
Quarter: 2015Q3

REPORT INFORMATION
  Report Type: Spontaneous
  Country: CA (occurrence: CA)
  Receive Date: 20150715
  Receipt Date: 20150715
  Transmission Date: 20151125
  Serious: Yes (Other)
  Sender: FDA-Public Use
  Company Number: CA-AKORN PHARMACEUTICALS-2015AKN00391

PATIENT

DRUGS (2)
  1. ISOTRETINOIN [Suspect]
     Active Substance: ISOTRETINOIN
     Dosage: 1 MG/KG, 1X/DAY
     Route: 048
  2. ISOTRETINOIN [Suspect]
     Active Substance: ISOTRETINOIN
     Indication: ACNE
     Dosage: 0.5 MG/KG, 1X/DAY
     Route: 048

REACTIONS (3)
  - Depressed mood [Unknown]
  - Hallucination [Unknown]
  - Insomnia [Unknown]
